FAERS Safety Report 11133392 (Version 7)
Quarter: 2015Q4

REPORT INFORMATION
  Report Type: Spontaneous
  Country: JP (occurrence: JP)
  Receive Date: 20150522
  Receipt Date: 20151005
  Transmission Date: 20160304
  Serious: Yes (Life-Threatening)
  Sender: FDA-Public Use
  Company Number: JP-ASTRAZENECA-2015SE37614

PATIENT
  Age: 78 Year
  Sex: Male
  Weight: 48 kg

DRUGS (10)
  1. NEXIUM [Suspect]
     Active Substance: ESOMEPRAZOLE MAGNESIUM
     Indication: GASTRIC ULCER
     Route: 048
     Dates: start: 20141226, end: 20150328
  2. CRESTOR [Suspect]
     Active Substance: ROSUVASTATIN CALCIUM
     Indication: HYPERLIPIDAEMIA
     Route: 048
     Dates: start: 20141226
  3. ARTIST [Concomitant]
     Active Substance: CARVEDILOL
     Indication: ACUTE MYOCARDIAL INFARCTION
     Route: 048
     Dates: start: 20141226
  4. BAYASPIRIN [Concomitant]
     Active Substance: ASPIRIN
     Indication: GASTRIC ULCER
     Dosage: DOSE UNKNOWN
     Route: 065
  5. PARIET [Concomitant]
     Active Substance: RABEPRAZOLE SODIUM
     Indication: GASTRIC ULCER
     Dosage: DOSE UNKNOWN
     Route: 065
     Dates: start: 20150328
  6. LUPRAC [Concomitant]
     Active Substance: TORSEMIDE
     Indication: CARDIAC FAILURE CONGESTIVE
     Route: 048
     Dates: start: 20141231
  7. PLAVIX [Concomitant]
     Active Substance: CLOPIDOGREL BISULFATE
     Indication: GASTRIC ULCER
     Dosage: DOSE UNKNOWN
     Route: 065
     Dates: end: 2015
  8. ANCARON [Concomitant]
     Active Substance: AMIODARONE HYDROCHLORIDE
     Indication: VENTRICULAR TACHYCARDIA
     Dosage: DOSE UNKNOWN
     Route: 041
     Dates: start: 20141226, end: 20141226
  9. COMPLAVIN [Concomitant]
     Active Substance: ASPIRIN\CLOPIDOGREL BISULFATE
     Indication: ACUTE MYOCARDIAL INFARCTION
     Route: 048
     Dates: start: 20141226, end: 20150326
  10. SIGMART [Concomitant]
     Active Substance: NICORANDIL
     Indication: ACUTE MYOCARDIAL INFARCTION
     Route: 048
     Dates: start: 20141226

REACTIONS (5)
  - Acute myocardial infarction [Recovering/Resolving]
  - Electrocardiogram QT prolonged [Recovering/Resolving]
  - Cardiac failure [Recovering/Resolving]
  - Ventricular tachycardia [Recovering/Resolving]
  - Coronary artery reocclusion [Recovering/Resolving]

NARRATIVE: CASE EVENT DATE: 20141226
